FAERS Safety Report 5577253-X (Version None)
Quarter: 2007Q4

REPORT INFORMATION
  Report Type: 
  Country: None (occurrence: None)
  Receive Date: 20071228
  Receipt Date: 20071226
  Transmission Date: 20080405
  Serious: Yes (Other)
  Sender: FDA-Public Use
  Company Number: US-MERCK-0712USA08846

PATIENT
  Age: 50 Year
  Sex: Female

DRUGS (9)
  1. ZETIA [Suspect]
     Indication: BLOOD CHOLESTEROL
     Route: 048
     Dates: start: 20070101, end: 20071201
  2. PROGRAF [Concomitant]
     Route: 065
  3. [THERAPY UNSPECIFIED] [Concomitant]
     Route: 065
  4. IMURAN [Concomitant]
     Route: 065
  5. SYNTHROID [Concomitant]
     Route: 065
  6. DIAMOX [Concomitant]
     Route: 065
  7. LASIX [Concomitant]
     Route: 065
  8. PREDNISONE [Concomitant]
     Route: 065
  9. VITAMINS (UNSPECIFIED) [Concomitant]
     Route: 065

REACTIONS (3)
  - CONVULSION [None]
  - EATING DISORDER [None]
  - NAUSEA [None]
